FAERS Safety Report 9294885 (Version 1)
Quarter: 2013Q2

REPORT INFORMATION
  Report Type: Spontaneous
  Country: IT (occurrence: IT)
  Receive Date: 20130517
  Receipt Date: 20130517
  Transmission Date: 20140414
  Serious: Yes (Other)
  Sender: FDA-Public Use
  Company Number: IT-JNJFOC-20130503896

PATIENT
  Sex: 0

DRUGS (6)
  1. DOXORUBICIN [Suspect]
     Indication: HODGKIN^S DISEASE
     Route: 042
  2. BLEOMYCIN [Suspect]
     Indication: HODGKIN^S DISEASE
     Dosage: 10 U/M2
     Route: 065
  3. VINBLASTINE [Interacting]
     Indication: HODGKIN^S DISEASE
     Route: 065
  4. DACARBAZINE [Suspect]
     Indication: HODGKIN^S DISEASE
     Route: 065
  5. LOPINAVIR [Interacting]
     Indication: HIV INFECTION
     Route: 065
  6. RITONAVIR [Interacting]
     Indication: HIV INFECTION
     Route: 065

REACTIONS (4)
  - Toxicity to various agents [Unknown]
  - Ileus paralytic [Unknown]
  - Drug interaction [Unknown]
  - Febrile neutropenia [Unknown]
